FAERS Safety Report 16655339 (Version 1)
Quarter: 2019Q3

REPORT INFORMATION
  Report Type: Spontaneous
  Country: US (occurrence: US)
  Receive Date: 20190801
  Receipt Date: 20190801
  Transmission Date: 20191004
  Serious: Yes (Hospitalization)
  Sender: FDA-Public Use
  Company Number: US-HORIZON-PRE-0350-2019

PATIENT
  Age: 22 Year
  Sex: Female

DRUGS (2)
  1. REMODULIN [Suspect]
     Active Substance: TREPROSTINIL
     Indication: PULMONARY ARTERIAL HYPERTENSION
     Dosage: 37.5 NG/KG/MIN CONTINUOUS
     Route: 058
     Dates: start: 20190104
  2. PREDNISONE. [Suspect]
     Active Substance: PREDNISONE
     Indication: PRODUCT USED FOR UNKNOWN INDICATION

REACTIONS (7)
  - Infusion site haemorrhage [Unknown]
  - Unevaluable event [Unknown]
  - Abdominal distension [Unknown]
  - Pancreatitis [Unknown]
  - Infusion site pain [Unknown]
  - Cystitis [Unknown]
  - Steroid withdrawal syndrome [Unknown]

NARRATIVE: CASE EVENT DATE: 20190707
